FAERS Safety Report 25992863 (Version 2)
Quarter: 2025Q4

REPORT INFORMATION
  Report Type: Spontaneous
  Country: US (occurrence: US)
  Receive Date: 20251103
  Receipt Date: 20251117
  Transmission Date: 20260117
  Serious: Yes (Disabling)
  Sender: TEVA
  Company Number: US-TEVA-VS-3387757

PATIENT
  Age: 75 Year
  Sex: Male

DRUGS (2)
  1. LIDOCAINE [Suspect]
     Active Substance: LIDOCAINE
     Indication: Accidental exposure to product
     Dosage: APPROXIMATELY 0.07ML;ROA: OTHER
     Route: 065
  2. AFLIBERCEPT [Concomitant]
     Active Substance: AFLIBERCEPT
     Indication: Neovascular age-related macular degeneration
     Route: 065

REACTIONS (4)
  - Blindness [Recovering/Resolving]
  - Accidental exposure to product [Unknown]
  - Physical product label issue [Unknown]
  - Product communication issue [Unknown]
